FAERS Safety Report 24798762 (Version 1)
Quarter: 2025Q1

REPORT INFORMATION
  Report Type: Spontaneous
  Country: CN (occurrence: CN)
  Receive Date: 20250102
  Receipt Date: 20250102
  Transmission Date: 20250408
  Serious: Yes (Other)
  Sender: Kenvue
  Company Number: CN-JOHNSON + JOHNSON CONSUMER SERVICES EAME-20241208095

PATIENT

DRUGS (2)
  1. IBUPROFEN [Suspect]
     Active Substance: IBUPROFEN
     Indication: Patent ductus arteriosus
     Route: 048
  2. IBUPROFEN [Suspect]
     Active Substance: IBUPROFEN
     Route: 048

REACTIONS (5)
  - Off label use [Unknown]
  - Gastrointestinal haemorrhage [Unknown]
  - Oliguria [Unknown]
  - Platelet count decreased [Unknown]
  - Therapeutic response unexpected [Unknown]
